FAERS Safety Report 10089505 (Version 1)
Quarter: 2014Q2

REPORT INFORMATION
  Report Type: Spontaneous
  Country: NL (occurrence: None)
  Receive Date: 20140417
  Receipt Date: 20140417
  Transmission Date: 20141212
  Serious: Yes (Other)
  Sender: FDA-Public Use
  Company Number: SYM-2014-19757

PATIENT
  Age: 37 Year
  Sex: Female

DRUGS (3)
  1. BUPROPION (TABLET) (BUPROPION) [Suspect]
     Indication: ATTENTION DEFICIT/HYPERACTIVITY DISORDER
     Route: 048
     Dates: start: 20140326
  2. CYPROTERONE ACETATE (CYPROTERONE ACETATE) [Concomitant]
  3. ESTRADIOL (ESTRADIOL) [Concomitant]

REACTIONS (1)
  - Altered state of consciousness [None]
